FAERS Safety Report 5500726-2 (Version None)
Quarter: 2007Q4

REPORT INFORMATION
  Report Type: 
  Country: None (occurrence: None)
  Receive Date: 20071029
  Receipt Date: 20071018
  Transmission Date: 20080405
  Serious: Yes (Other)
  Sender: FDA-Public Use
  Company Number: ES-ASTRAZENECA-2007AC02027

PATIENT
  Age: 6 Year
  Sex: Male

DRUGS (2)
  1. PULMICORT [Suspect]
     Route: 055
     Dates: start: 20070301
  2. ACCOLATE [Suspect]
     Route: 048
     Dates: start: 20070301, end: 20070501

REACTIONS (3)
  - BRADYPHRENIA [None]
  - DISTURBANCE IN ATTENTION [None]
  - PSYCHOMOTOR HYPERACTIVITY [None]
